FAERS Safety Report 9061232 (Version 1)
Quarter: 2013Q1

REPORT INFORMATION
  Report Type: Spontaneous
  Country: US (occurrence: None)
  Receive Date: 20130207
  Receipt Date: 20130207
  Transmission Date: 20140127
  Serious: Yes (Other)
  Sender: FDA-Public Use
  Company Number: None

PATIENT
  Sex: Female
  Weight: 93.44 kg

DRUGS (1)
  1. SIMVASTATIN [Suspect]
     Dosage: 1 DAILY
     Route: 048
     Dates: start: 2010, end: 2012

REACTIONS (2)
  - Arthralgia [None]
  - Myalgia [None]
